FAERS Safety Report 9099330 (Version 1)
Quarter: 2013Q1

REPORT INFORMATION
  Report Type: Spontaneous
  Country: US (occurrence: US)
  Receive Date: 20130213
  Receipt Date: 20130213
  Transmission Date: 20140127
  Serious: Yes (Death, Other)
  Sender: FDA-Public Use
  Company Number: US-ELI_LILLY_AND_COMPANY-US201302001727

PATIENT
  Age: 26 Year
  Sex: Female

DRUGS (5)
  1. ATOMOXETINE HYDROCHLORIDE [Suspect]
  2. FLUVOXAMINE [Concomitant]
  3. CLONAZEPAM [Concomitant]
  4. ZIPRASIDONE [Concomitant]
  5. LAMOTRIGINE [Concomitant]

REACTIONS (2)
  - Completed suicide [Fatal]
  - Cardio-respiratory arrest [Fatal]
